FAERS Safety Report 6140554-0 (Version None)
Quarter: 2009Q2

REPORT INFORMATION
  Report Type: 
  Country: None (occurrence: None)
  Receive Date: 20090402
  Receipt Date: 20090324
  Transmission Date: 20091009
  Serious: Yes (Death, Life-Threatening, Disabling, Other)
  Sender: FDA-Public Use
  Company Number: GB-RANBAXY-2009RR-22806

PATIENT
  Age: 70 Year
  Sex: Male

DRUGS (23)
  1. SIMVASTATIN [Suspect]
     Indication: HYPERCHOLESTEROLAEMIA
     Dosage: 40 MG, UNK
     Route: 048
     Dates: start: 20050101, end: 20081209
  2. SIMVASTATIN [Suspect]
     Indication: MYOCARDIAL ISCHAEMIA
  3. CLARITHROMYCIN [Concomitant]
     Indication: LOWER RESPIRATORY TRACT INFECTION
     Dosage: 500 MG, BID
     Route: 048
     Dates: start: 20081208, end: 20081209
  4. ERITHROMYCIN [Concomitant]
     Indication: LOWER RESPIRATORY TRACT INFECTION
     Dosage: 500 MG, BID
     Route: 048
     Dates: start: 20081204, end: 20081208
  5. SODIUM FUSIDATE [Concomitant]
     Indication: INTERVERTEBRAL DISCITIS
     Dosage: 500 MG, TID
     Route: 048
     Dates: start: 20081113, end: 20081216
  6. SODIUM FUSIDATE [Concomitant]
     Indication: MUSCLE ABSCESS
  7. AMITRIPTYLINE HCL [Concomitant]
  8. COSOPT [Concomitant]
  9. DICLOFENAC [Concomitant]
  10. FENTANYL-25 [Concomitant]
  11. FLUCLOXACILLIN [Concomitant]
  12. GABAPENTIN [Concomitant]
  13. GLUCOSAMINE [Concomitant]
  14. LACTULOSE [Concomitant]
  15. MAGNESIUM HYDROXIDE TAB [Concomitant]
  16. NULYTELY [Concomitant]
  17. PARACETAMOL [Concomitant]
  18. SENNA [Concomitant]
  19. SPIRIVA [Concomitant]
  20. TRAMADOL HYDROCHLORIDE [Concomitant]
  21. XALATAN [Concomitant]
  22. ASPIRIN [Concomitant]
  23. LISINOPRIL [Concomitant]

REACTIONS (4)
  - MUSCULAR WEAKNESS [None]
  - RENAL FAILURE ACUTE [None]
  - RESPIRATORY DISORDER [None]
  - RHABDOMYOLYSIS [None]
